FAERS Safety Report 15495246 (Version 1)
Quarter: 2018Q4

REPORT INFORMATION
  Report Type: Spontaneous
  Country: US (occurrence: US)
  Receive Date: 20181012
  Receipt Date: 20181012
  Transmission Date: 20190205
  Serious: Yes (Other)
  Sender: FDA-Public Use
  Company Number: None

PATIENT
  Age: 65 Year
  Sex: Female
  Weight: 72 kg

DRUGS (1)
  1. METHYLPHENIDATE 54MG ER TABLETS [Suspect]
     Active Substance: METHYLPHENIDATE
     Indication: NERVOUS SYSTEM DISORDER
     Dosage: ?          QUANTITY:1 TABLET(S);?
     Route: 048
     Dates: start: 20180928, end: 20181012

REACTIONS (6)
  - Feeling jittery [None]
  - Heart rate increased [None]
  - Product substitution issue [None]
  - Fatigue [None]
  - Therapeutic response changed [None]
  - Decreased appetite [None]

NARRATIVE: CASE EVENT DATE: 20180930
